FAERS Safety Report 7470012-2 (Version None)
Quarter: 2011Q2

REPORT INFORMATION
  Report Type: 
  Country: None (occurrence: None)
  Receive Date: 20110510
  Receipt Date: 20110506
  Transmission Date: 20111010
  Serious: Yes (Other)
  Sender: FDA-Public Use
  Company Number: CH-ROCHE-775640

PATIENT
  Sex: Male

DRUGS (1)
  1. ACTEMRA [Suspect]
     Indication: JUVENILE ARTHRITIS
     Dosage: FREQUENCY: SINGLE. FORM: INFUSION.
     Route: 042
     Dates: start: 20110405, end: 20110401

REACTIONS (1)
  - JUVENILE ARTHRITIS [None]
